FAERS Safety Report 6378049-1 (Version None)
Quarter: 2009Q3

REPORT INFORMATION
  Report Type: 
  Country: None (occurrence: None)
  Receive Date: 20090925
  Receipt Date: 20090915
  Transmission Date: 20100115
  Serious: Yes (Other)
  Sender: FDA-Public Use
  Company Number: US-ELI_LILLY_AND_COMPANY-US200905001230

PATIENT
  Age: 45 Year
  Sex: Male

DRUGS (5)
  1. CYMBALTA [Suspect]
     Dosage: UNK, UNK
     Dates: start: 20070901
  2. CYMBALTA [Suspect]
     Dosage: 90 MG, UNK
     Dates: end: 20080201
  3. VICODIN [Concomitant]
     Dosage: UNK, AS NEEDED
  4. IBUPROFEN [Concomitant]
  5. ABILIFY [Concomitant]

REACTIONS (8)
  - DEPRESSION [None]
  - GASTROINTESTINAL HAEMORRHAGE [None]
  - HEPATIC CIRRHOSIS [None]
  - HEPATIC FAILURE [None]
  - HEPATIC STEATOSIS [None]
  - RENAL FAILURE [None]
  - SPLENIC VARICES [None]
  - VARICES OESOPHAGEAL [None]
